FAERS Safety Report 9490651 (Version 2)
Quarter: 2013Q4

REPORT INFORMATION
  Report Type: Spontaneous
  Country: IT (occurrence: None)
  Receive Date: 20130826
  Receipt Date: 20131017
  Transmission Date: 20140711
  Serious: Yes (Hospitalization)
  Sender: FDA-Public Use
  Company Number: AUR-APL-2013-06965

PATIENT
  Age: 73 Year
  Sex: Female

DRUGS (6)
  1. METFORMIN [Suspect]
     Indication: DIABETES MELLITUS
     Route: 048
     Dates: start: 20120101, end: 20120812
  2. LEVOFLOXACIN [Suspect]
     Indication: PRODUCT USED FOR UNKNOWN INDICATION
     Route: 048
     Dates: start: 20130801, end: 20130812
  3. KCL-RETARD [Concomitant]
  4. FERR0-GRAD (FERROUS SULFATE) [Concomitant]
  5. ESOMEPRAZOLE [Concomitant]
  6. ESOMEPRAZOLE MAGNESIUM TRIHYDRATE [Concomitant]

REACTIONS (2)
  - Hypoglycaemia [None]
  - Drug interaction [None]
